FAERS Safety Report 4446170-0 (Version None)
Quarter: 2004Q3

REPORT INFORMATION
  Report Type: 
  Country: None (occurrence: None)
  Receive Date: 20040908
  Receipt Date: 20040826
  Transmission Date: 20050211
  Serious: Yes (Hospitalization)
  Sender: FDA-Public Use
  Company Number: CA-BRISTOL-MYERS SQUIBB COMPANY-12685079

PATIENT
  Sex: Male

DRUGS (3)
  1. CISPLATIN [Suspect]
     Indication: BLADDER CANCER
     Dates: start: 20040601, end: 20040727
  2. GEMCITABINE [Suspect]
     Indication: BLADDER CANCER
     Dates: start: 20040601, end: 20040727
  3. MANNITOL [Concomitant]
     Dates: start: 20040601, end: 20040727

REACTIONS (1)
  - DEEP VEIN THROMBOSIS [None]
